FAERS Safety Report 7542211-2 (Version None)
Quarter: 2011Q2

REPORT INFORMATION
  Report Type: 
  Country: None (occurrence: None)
  Receive Date: 20110524
  Receipt Date: 20110408
  Transmission Date: 20111010
  Serious: No
  Sender: FDA-Public Use
  Company Number: 028971

PATIENT
  Age: 29 Year
  Sex: Female

DRUGS (2)
  1. AZATHIOPRINE [Concomitant]
  2. CIMZIA [Suspect]
     Indication: CROHN'S DISEASE
     Dosage: (SUBCUTANEOUS)
     Route: 058
     Dates: start: 20110201

REACTIONS (5)
  - BRONCHITIS [None]
  - NAUSEA [None]
  - DIARRHOEA [None]
  - ARTHRALGIA [None]
  - PYREXIA [None]
